FAERS Safety Report 11918397 (Version 1)
Quarter: 2016Q1

REPORT INFORMATION
  Report Type: Report from Study
  Country: TR (occurrence: TR)
  Receive Date: 20160115
  Receipt Date: 20160115
  Transmission Date: 20160526
  Serious: Yes (Hospitalization)
  Sender: FDA-Public Use
  Company Number: TR-ABBVIE-16K-161-1536840-00

PATIENT
  Age: 31 Year
  Sex: Female
  Weight: 65 kg

DRUGS (3)
  1. HUMIRA [Suspect]
     Active Substance: ADALIMUMAB
     Indication: ANKYLOSING SPONDYLITIS
     Route: 058
     Dates: start: 20151130, end: 20151228
  2. INH [Concomitant]
     Active Substance: ISONIAZID
     Indication: ANTIBIOTIC PROPHYLAXIS
     Route: 048
     Dates: start: 20151125
  3. METOTREKSAT EBEWE [Concomitant]
     Indication: ANKYLOSING SPONDYLITIS
     Route: 048
     Dates: start: 201506, end: 20160106

REACTIONS (2)
  - Pain [Recovered/Resolved]
  - Dermal cyst [Recovered/Resolved]

NARRATIVE: CASE EVENT DATE: 201601
